FAERS Safety Report 13510667 (Version 2)
Quarter: 2017Q2

REPORT INFORMATION
  Report Type: Report from Study
  Country: US (occurrence: US)
  Receive Date: 20170503
  Receipt Date: 20170511
  Transmission Date: 20170830
  Serious: Yes (Hospitalization)
  Sender: FDA-Public Use
  Company Number: US-ACTELION-A-NJ2017-153397

PATIENT
  Age: 3 Year
  Sex: Male

DRUGS (3)
  1. TRACLEER [Suspect]
     Active Substance: BOSENTAN
     Indication: PULMONARY ARTERIAL HYPERTENSION
     Dosage: 15.625 MG, BID
     Route: 048
     Dates: start: 20160926
  2. ASPIRIN. [Concomitant]
     Active Substance: ASPIRIN
     Dosage: 40 MG, BID
     Route: 048
     Dates: start: 20130909
  3. SILDENAFIL. [Concomitant]
     Active Substance: SILDENAFIL
     Dosage: 14 MG, TID
     Route: 048
     Dates: start: 20140207

REACTIONS (3)
  - Cardiovascular disorder [Unknown]
  - Thrombosis [Recovered/Resolved]
  - Oxygen saturation decreased [Unknown]

NARRATIVE: CASE EVENT DATE: 20170314
